FAERS Safety Report 5095899-2 (Version None)
Quarter: 2006Q3

REPORT INFORMATION
  Report Type: 
  Country: None (occurrence: None)
  Receive Date: 20060727
  Receipt Date: 20060628
  Transmission Date: 20061208
  Serious: No
  Sender: FDA-Public Use
  Company Number: FACT0600287

PATIENT
  Age: 48 Year
  Sex: Female
  Weight: 65.8 kg

DRUGS (1)
  1. FACTIVE [Suspect]
     Indication: RESPIRATORY TRACT INFECTION
     Dosage: 320 MG, QD, ORAL
     Route: 048
     Dates: start: 20060624

REACTIONS (1)
  - HYPERHIDROSIS [None]
